FAERS Safety Report 10886573 (Version 1)
Quarter: 2015Q1

REPORT INFORMATION
  Report Type: Spontaneous
  Country: US (occurrence: US)
  Receive Date: 20150304
  Receipt Date: 20150304
  Transmission Date: 20150721
  Serious: Yes (Hospitalization)
  Sender: FDA-Public Use
  Company Number: US-GLAXOSMITHKLINE-US2015GSK028051

PATIENT
  Age: 55 Year
  Sex: Female

DRUGS (8)
  1. METHOTREXATE [Concomitant]
     Active Substance: METHOTREXATE
  2. BENLYSTA [Suspect]
     Active Substance: BELIMUMAB
     Indication: SYSTEMIC LUPUS ERYTHEMATOSUS
     Dosage: UNK, CYC
     Route: 065
     Dates: start: 2013
  3. JANUMET [Concomitant]
     Active Substance: METFORMIN HYDROCHLORIDE\SITAGLIPTIN PHOSPHATE
  4. NUVIGIL [Concomitant]
     Active Substance: ARMODAFINIL
  5. VITAMIN B12 [Concomitant]
     Active Substance: CYANOCOBALAMIN
  6. GLIPIZIDE XL [Concomitant]
     Active Substance: GLIPIZIDE
  7. PLAQUENIL [Concomitant]
     Active Substance: HYDROXYCHLOROQUINE SULFATE
  8. TRAMADOL [Concomitant]
     Active Substance: TRAMADOL

REACTIONS (10)
  - Dyspnoea [Recovered/Resolved]
  - Therapeutic response unexpected [Unknown]
  - Diarrhoea [Recovered/Resolved]
  - Bronchitis [Recovered/Resolved]
  - Blood pressure increased [Recovered/Resolved]
  - Blood glucose abnormal [Recovered/Resolved]
  - Arthralgia [Not Recovered/Not Resolved]
  - Paraesthesia [Not Recovered/Not Resolved]
  - Blood glucose increased [Not Recovered/Not Resolved]
  - Nausea [Recovered/Resolved]

NARRATIVE: CASE EVENT DATE: 201403
